FAERS Safety Report 21169928 (Version 1)
Quarter: 2022Q3

REPORT INFORMATION
  Report Type: Spontaneous
  Country: DE (occurrence: DE)
  Receive Date: 20220804
  Receipt Date: 20220804
  Transmission Date: 20221027
  Serious: No
  Sender: FDA-Public Use
  Company Number: DE-ALKEM LABORATORIES LIMITED-DE-ALKEM-2022-04305

PATIENT
  Sex: Female

DRUGS (1)
  1. PREGABALIN [Suspect]
     Active Substance: PREGABALIN
     Indication: Product used for unknown indication
     Dosage: 100 MILLIGRAM
     Route: 065

REACTIONS (7)
  - Arthralgia [Unknown]
  - Joint swelling [Unknown]
  - Joint warmth [Unknown]
  - Movement disorder [Unknown]
  - Flatulence [Unknown]
  - Dry mouth [Unknown]
  - Somnolence [Unknown]
